FAERS Safety Report 14645171 (Version 3)
Quarter: 2018Q2

REPORT INFORMATION
  Report Type: Report from Study
  Country: None (occurrence: US)
  Receive Date: 20180315
  Receipt Date: 20180622
  Transmission Date: 20180711
  Serious: Yes (Hospitalization, Other)
  Sender: FDA-Public Use
  Company Number: US-ABBVIE-17K-163-2055457-00

PATIENT
  Age: 62 Year
  Sex: Male

DRUGS (3)
  1. HUMIRA [Suspect]
     Active Substance: ADALIMUMAB
     Indication: ANKYLOSING SPONDYLITIS
     Route: 058
     Dates: start: 20130101, end: 201611
  2. HUMIRA [Suspect]
     Active Substance: ADALIMUMAB
     Route: 058
     Dates: end: 201711
  3. HUMIRA [Suspect]
     Active Substance: ADALIMUMAB
     Route: 058
     Dates: start: 2018

REACTIONS (15)
  - Sensitivity to weather change [Unknown]
  - Surgical failure [Not Recovered/Not Resolved]
  - Cholelithiasis obstructive [Not Recovered/Not Resolved]
  - Pain [Unknown]
  - Ankylosing spondylitis [Unknown]
  - Vertebral osteophyte [Unknown]
  - Fatigue [Unknown]
  - Discomfort [Unknown]
  - Bronchitis [Unknown]
  - Cholecystitis infective [Unknown]
  - Pain in extremity [Unknown]
  - Cholelithiasis [Unknown]
  - Gallbladder disorder [Unknown]
  - Arthralgia [Unknown]
  - Joint range of motion decreased [Unknown]

NARRATIVE: CASE EVENT DATE: 201611
